FAERS Safety Report 4462497-0 (Version None)
Quarter: 2004Q3

REPORT INFORMATION
  Report Type: 
  Country: None (occurrence: None)
  Receive Date: 20040928
  Receipt Date: 20040910
  Transmission Date: 20050211
  Serious: Yes (Other)
  Sender: FDA-Public Use
  Company Number: 2004066668

PATIENT
  Age: 44 Year
  Sex: Male

DRUGS (2)
  1. ATORVASTATIN (ATORVASTATIN) [Suspect]
     Indication: TYPE IIA HYPERLIPIDAEMIA
  2. CERIVASTATIN (CERIVASTATIN) [Suspect]
     Indication: TYPE IIA HYPERLIPIDAEMIA

REACTIONS (4)
  - BLOOD CREATINE PHOSPHOKINASE INCREASED [None]
  - FATIGUE [None]
  - HYPERTHERMIA MALIGNANT [None]
  - MUSCLE CRAMP [None]
